FAERS Safety Report 7893997-9 (Version None)
Quarter: 2011Q4

REPORT INFORMATION
  Report Type: 
  Country: None (occurrence: None)
  Receive Date: 20111104
  Receipt Date: 20111103
  Transmission Date: 20120403
  Serious: Yes (Other)
  Sender: FDA-Public Use
  Company Number: US-PFIZER INC-2011269965

PATIENT
  Sex: Female
  Weight: 71.7 kg

DRUGS (3)
  1. PRISTIQ [Suspect]
     Indication: DEPRESSION
     Dosage: 100 MG, 1X/DAY
     Route: 048
  2. SINGULAIR [Concomitant]
     Dosage: UNK
  3. VERELAN [Concomitant]
     Dosage: UNK

REACTIONS (1)
  - HYPERTENSION [None]
